FAERS Safety Report 8218303-1 (Version None)
Quarter: 2012Q1

REPORT INFORMATION
  Report Type: 
  Country: None (occurrence: None)
  Receive Date: 20120316
  Receipt Date: 20120316
  Transmission Date: 20120608
  Serious: Yes (Hospitalization)
  Sender: FDA-Public Use
  Company Number: None

PATIENT
  Sex: Female
  Weight: 74.9 kg

DRUGS (13)
  1. ALIMTA [Suspect]
     Indication: SARCOMA
     Dosage: 920MG IV C1D1
     Route: 042
     Dates: start: 20120124
  2. ALIMTA [Suspect]
     Indication: SARCOMA
     Dosage: 920MG IV C1D1
     Route: 042
     Dates: start: 20120207
  3. CLARITIN [Concomitant]
  4. OXYCONTIN [Concomitant]
  5. OXYCODONE HCL [Concomitant]
  6. LISINOPRIL [Concomitant]
  7. FLUTICASONE PROPIONATE [Concomitant]
  8. MIRALAX [Concomitant]
  9. TAXOTERE [Suspect]
  10. TAXOTERE [Suspect]
     Indication: SARCOMA
     Dosage: 74MG IV C1D1
     Route: 042
     Dates: start: 20120124
  11. TAXOTERE [Suspect]
     Indication: SARCOMA
     Dosage: 74MG IV C1D1
     Route: 042
     Dates: start: 20120207
  12. CLONIDINE HCL [Concomitant]
  13. COMPAZINE [Concomitant]

REACTIONS (5)
  - MALNUTRITION [None]
  - DYSPNOEA [None]
  - NAUSEA [None]
  - DISEASE PROGRESSION [None]
  - TACHYCARDIA [None]
